FAERS Safety Report 7029593-5 (Version None)
Quarter: 2010Q4

REPORT INFORMATION
  Report Type: 
  Country: None (occurrence: None)
  Receive Date: 20101005
  Receipt Date: 20100930
  Transmission Date: 20110411
  Serious: Yes (Congenital Anomaly)
  Sender: FDA-Public Use
  Company Number: DE-MERCK-1009DEU00132B1

PATIENT
  Age: 1 Day

DRUGS (2)
  1. ISENTRESS [Suspect]
     Indication: HIV INFECTION
     Route: 064
  2. ANTIVIRAL (UNSPECIFIED) [Concomitant]
     Indication: HIV INFECTION
     Route: 064

REACTIONS (4)
  - CONGENITAL ANOMALY [None]
  - CONGENITAL OESOPHAGEAL ANOMALY [None]
  - DRUG EXPOSURE DURING PREGNANCY [None]
  - SPINE MALFORMATION [None]
